FAERS Safety Report 9896474 (Version 2)
Quarter: 2014Q1

REPORT INFORMATION
  Report Type: Spontaneous
  Country: US (occurrence: US)
  Receive Date: 20140213
  Receipt Date: 20140213
  Transmission Date: 20141002
  Serious: No
  Sender: FDA-Public Use
  Company Number: US-BRISTOL-MYERS SQUIBB COMPANY-17458258

PATIENT
  Age: 57 Year
  Sex: Female

DRUGS (2)
  1. ORENCIA FOR INJ [Suspect]
     Indication: RHEUMATOID ARTHRITIS
  2. PREDNISONE [Concomitant]

REACTIONS (4)
  - Alopecia [Unknown]
  - Pain in extremity [Unknown]
  - Local swelling [Unknown]
  - Drug ineffective [Unknown]
